FAERS Safety Report 25484362 (Version 2)
Quarter: 2025Q3

REPORT INFORMATION
  Report Type: Spontaneous
  Country: US (occurrence: US)
  Receive Date: 20250626
  Receipt Date: 20250722
  Transmission Date: 20251021
  Serious: No
  Sender: SANOFI AVENTIS
  Company Number: US-SA-2025SA180332

PATIENT
  Age: 16 Year
  Sex: Male
  Weight: 53 kg

DRUGS (1)
  1. TZIELD [Suspect]
     Active Substance: TEPLIZUMAB-MZWV
     Indication: Diabetes prophylaxis
     Dosage: 65 UG/M2 1 DOSE EVERY 1 DAY[ TITRATED UP]
     Route: 042
     Dates: start: 20250609, end: 20250622

REACTIONS (1)
  - Rash [Recovered/Resolved]

NARRATIVE: CASE EVENT DATE: 20250613
